FAERS Safety Report 8061947 (Version 5)
Quarter: 2014Q2

REPORT INFORMATION
  Report Type: Report from Study
  Country: US (occurrence: US)
  Receive Date: 20110801
  Receipt Date: 20140516
  Transmission Date: 20141212
  Serious: Yes (Hospitalization, Other)
  Sender: FDA-Public Use
  Company Number: US-BIOGENIDEC-2011BI027372

PATIENT
  Age: 46 Year
  Sex: Male

DRUGS (10)
  1. AVONEX [Suspect]
     Indication: MULTIPLE SCLEROSIS
     Route: 030
  2. AVONEX [Suspect]
     Indication: MULTIPLE SCLEROSIS
     Route: 030
     Dates: start: 20091113, end: 201103
  3. WARFARIN [Concomitant]
     Indication: THROMBOSIS
     Dates: start: 200412
  4. COUMADIN [Concomitant]
     Indication: THROMBOSIS
  5. LASIX [Concomitant]
  6. LOVASTATIN [Concomitant]
  7. PRADAXA [Concomitant]
  8. GILENYA [Concomitant]
     Route: 048
  9. COPAXONE [Concomitant]
  10. BETASERON [Concomitant]

REACTIONS (13)
  - Implantable defibrillator replacement [Recovered/Resolved]
  - Aortic aneurysm [Unknown]
  - Venous thrombosis [Unknown]
  - Brugada syndrome [Unknown]
  - Arrhythmia [Unknown]
  - Obesity [Unknown]
  - Diabetes mellitus [Unknown]
  - Influenza like illness [Recovered/Resolved]
  - Multiple sclerosis relapse [Unknown]
  - Subclavian vein thrombosis [Recovered/Resolved]
  - Hypotension [Recovered/Resolved]
  - Headache [Recovered/Resolved]
  - Vomiting [Recovered/Resolved]
